FAERS Safety Report 19161353 (Version 2)
Quarter: 2021Q2

REPORT INFORMATION
  Report Type: Spontaneous
  Country: US (occurrence: US)
  Receive Date: 20210421
  Receipt Date: 20210506
  Transmission Date: 20210717
  Serious: Yes (Death, Other)
  Sender: FDA-Public Use
  Company Number: US-009507513-2104USA004562

PATIENT
  Age: 58 Year
  Sex: Male
  Weight: 91.16 kg

DRUGS (1)
  1. KEYTRUDA [Suspect]
     Active Substance: PEMBROLIZUMAB
     Indication: HAEMANGIOPERICYTOMA
     Dosage: 200 MILLIGRAM
     Route: 042
     Dates: start: 202006, end: 20210331

REACTIONS (2)
  - Product use in unapproved indication [Unknown]
  - Malignant neoplasm progression [Fatal]

NARRATIVE: CASE EVENT DATE: 202006
